FAERS Safety Report 11626278 (Version 1)
Quarter: 2015Q4

REPORT INFORMATION
  Report Type: Report from Study
  Country: DE (occurrence: DE)
  Receive Date: 20151013
  Receipt Date: 20151013
  Transmission Date: 20160304
  Serious: Yes (Other)
  Sender: FDA-Public Use
  Company Number: DE-009507513-1407DEU006426

PATIENT

DRUGS (2)
  1. TEMOZOLOMIDE. [Suspect]
     Active Substance: TEMOZOLOMIDE
     Indication: GLIOMA
     Dosage: 75-80 MG/SQ METER/D, FOR 6 WEEKS WITH ONE WEEK REST, IN TOTAL OVER ONE YEAR
  2. CILENGITIDE [Suspect]
     Active Substance: CILENGITIDE
     Indication: GLIOMA
     Dosage: 1800 MG PER SQ METER, TWICE WEEKLY

REACTIONS (1)
  - Oedema [Unknown]
